FAERS Safety Report 6094135-8 (Version None)
Quarter: 2009Q1

REPORT INFORMATION
  Report Type: 
  Country: None (occurrence: None)
  Receive Date: 20090219
  Receipt Date: 20081117
  Transmission Date: 20090719
  Serious: No
  Sender: FDA-Public Use
  Company Number: WAES 0811USA02642

PATIENT
  Age: 65 Year
  Sex: Female

DRUGS (3)
  1. JANUVIA [Suspect]
     Indication: DIABETES MELLITUS
     Dosage: 50 MG/DAILY/PO
     Route: 048
     Dates: start: 20070501, end: 20080917
  2. LIPITOR [Concomitant]
  3. METFORMIN HCL [Concomitant]

REACTIONS (6)
  - ASTHENIA [None]
  - BLISTER [None]
  - ERYTHEMA [None]
  - FATIGUE [None]
  - SCAR [None]
  - URTICARIA [None]
